FAERS Safety Report 7217193-3 (Version None)
Quarter: 2011Q1

REPORT INFORMATION
  Report Type: 
  Country: None (occurrence: None)
  Receive Date: 20110110
  Receipt Date: 20110104
  Transmission Date: 20110831
  Serious: Yes (Hospitalization)
  Sender: FDA-Public Use
  Company Number: NL-MEDIMMUNE-MEDI-0011974

PATIENT
  Sex: Male
  Weight: 4.71 kg

DRUGS (3)
  1. SYNAGIS [Suspect]
     Route: 030
     Dates: start: 20101111, end: 20101111
  2. SYNAGIS [Suspect]
     Route: 030
     Dates: start: 20101207
  3. FERRO NOS [Concomitant]
     Indication: CEREBRAL HAEMORRHAGE
     Dates: start: 20100101

REACTIONS (4)
  - FLUID INTAKE REDUCED [None]
  - PYREXIA [None]
  - RESPIRATORY TRACT INFECTION VIRAL [None]
  - CYANOSIS [None]
